FAERS Safety Report 9374633 (Version 3)
Quarter: 2013Q3

REPORT INFORMATION
  Report Type: Spontaneous
  Country: US (occurrence: US)
  Receive Date: 20130628
  Receipt Date: 20130724
  Transmission Date: 20140515
  Serious: No
  Sender: FDA-Public Use
  Company Number: US-009507513-1306USA013312

PATIENT
  Age: 16 Year
  Sex: Female
  Weight: 73.16 kg

DRUGS (2)
  1. NEXPLANON [Suspect]
     Dosage: 1 DF, 3 YEARS
     Route: 059
     Dates: start: 20130620, end: 20130620
  2. NEXPLANON [Suspect]
     Dosage: UNK
     Route: 059
     Dates: start: 20130620

REACTIONS (2)
  - Device difficult to use [Recovered/Resolved]
  - Product quality issue [Unknown]
